FAERS Safety Report 10018940 (Version 1)
Quarter: 2014Q1

REPORT INFORMATION
  Report Type: Spontaneous
  Country: US (occurrence: None)
  Receive Date: 20140314
  Receipt Date: 20140314
  Transmission Date: 20141002
  Serious: Yes (Hospitalization)
  Sender: FDA-Public Use
  Company Number: None

PATIENT
  Age: 57 Year
  Sex: Male

DRUGS (4)
  1. AFINITOR [Suspect]
     Route: 048
     Dates: start: 20131203
  2. AFINITOR [Suspect]
     Route: 048
     Dates: start: 20131203
  3. AFINITOR [Suspect]
     Route: 048
     Dates: start: 20131203
  4. AFINITOR [Suspect]
     Route: 048
     Dates: start: 20131203

REACTIONS (5)
  - Blood urine present [None]
  - Renal failure [None]
  - Pneumonia [None]
  - Weight decreased [None]
  - Decreased appetite [None]
